FAERS Safety Report 8611602-0 (Version None)
Quarter: 2012Q3

REPORT INFORMATION
  Report Type: 
  Country: None (occurrence: None)
  Receive Date: 20120822
  Receipt Date: 20120815
  Transmission Date: 20120928
  Serious: No
  Sender: FDA-Public Use
  Company Number: US-ASTRAZENECA-2012SE57900

PATIENT
  Age: 44 Year
  Sex: Male

DRUGS (3)
  1. NEXIUM [Suspect]
     Route: 048
  2. SEROQUEL XR [Suspect]
     Route: 048
  3. LEVAQUIN [Concomitant]

REACTIONS (4)
  - BIPOLAR DISORDER [None]
  - DEMENTIA ALZHEIMER'S TYPE [None]
  - PROSTATIC DISORDER [None]
  - ADVERSE EVENT [None]
